FAERS Safety Report 4670208-9 (Version None)
Quarter: 2005Q2

REPORT INFORMATION
  Report Type: 
  Country: None (occurrence: None)
  Receive Date: 20050523
  Receipt Date: 20050505
  Transmission Date: 20051028
  Serious: Yes (Death, Hospitalization, Other)
  Sender: FDA-Public Use
  Company Number: 2005-0008142

PATIENT
  Age: 47 Year
  Sex: Male
  Weight: 79.3795 kg

DRUGS (12)
  1. TRUVADA [Suspect]
     Indication: HIV INFECTION
     Dosage: 1 DOSAGE FORMS, 1 IN 1 D, ORAL
     Route: 048
     Dates: start: 20041001, end: 20041118
  2. VIREAD [Suspect]
     Indication: HIV INFECTION
     Dates: end: 20041118
  3. EMTRIVA [Suspect]
     Indication: HIV INFECTION
     Dates: end: 20041118
  4. VISTIDE [Suspect]
     Dosage: INTRAVENOUS
     Route: 042
     Dates: end: 20041025
  5. KALETRA [Concomitant]
  6. TMC 125 [Concomitant]
  7. ZITHROMAX [Concomitant]
  8. BACTRIM [Concomitant]
  9. SPORANOX [Concomitant]
  10. ZOLOFT [Concomitant]
  11. XANAX [Concomitant]
  12. NEUPOGEN [Concomitant]

REACTIONS (5)
  - CENTRAL LINE INFECTION [None]
  - HAEMODIALYSIS [None]
  - MULTIPLE DRUG OVERDOSE ACCIDENTAL [None]
  - RENAL FAILURE ACUTE [None]
  - SEPSIS [None]
